FAERS Safety Report 17893295 (Version 1)
Quarter: 2020Q2

REPORT INFORMATION
  Report Type: Spontaneous
  Country: TW (occurrence: TW)
  Receive Date: 20200614
  Receipt Date: 20200614
  Transmission Date: 20200714
  Serious: Yes (Hospitalization)
  Sender: FDA-Public Use
  Company Number: TW-009507513-2006TWN004043

PATIENT
  Age: 66 Year
  Sex: Female

DRUGS (4)
  1. DAPTOMYCIN. [Suspect]
     Active Substance: DAPTOMYCIN
     Indication: STAPHYLOCOCCAL BACTERAEMIA
     Dosage: UNK
     Route: 065
  2. VANCOMYCIN [Suspect]
     Active Substance: VANCOMYCIN
     Indication: STAPHYLOCOCCAL BACTERAEMIA
     Dosage: UNKNOWN
     Route: 042
  3. AMIKACIN. [Suspect]
     Active Substance: AMIKACIN
     Indication: STAPHYLOCOCCAL BACTERAEMIA
     Dosage: UNKNOWN
     Route: 042
  4. RIFAMPIN. [Suspect]
     Active Substance: RIFAMPIN
     Indication: STAPHYLOCOCCAL BACTERAEMIA
     Dosage: UNKNOWN
     Route: 065

REACTIONS (6)
  - Psoas abscess [Unknown]
  - Metabolic acidosis [Unknown]
  - Treatment failure [Unknown]
  - Intervertebral discitis [Unknown]
  - Endocarditis [Unknown]
  - Respiratory failure [Recovering/Resolving]
